FAERS Safety Report 5477832-4 (Version None)
Quarter: 2007Q4

REPORT INFORMATION
  Report Type: 
  Country: None (occurrence: None)
  Receive Date: 20071004
  Receipt Date: 20070924
  Transmission Date: 20080405
  Serious: Yes (Hospitalization)
  Sender: FDA-Public Use
  Company Number: US-BAXTER-2007BH006994

PATIENT
  Age: 60 Year
  Sex: Female
  Weight: 74 kg

DRUGS (10)
  1. ARALAST [Suspect]
     Indication: ALPHA-1 ANTI-TRYPSIN DEFICIENCY
     Route: 042
     Dates: start: 20070911, end: 20070911
  2. ALBUTEROL [Concomitant]
     Indication: DRUG USE FOR UNKNOWN INDICATION
  3. FUROSEMIDE [Concomitant]
     Indication: DRUG USE FOR UNKNOWN INDICATION
     Route: 048
  4. ESTROGENS [Concomitant]
     Indication: DRUG USE FOR UNKNOWN INDICATION
     Route: 061
  5. IBANDRONATE SODIUM [Concomitant]
     Indication: DRUG USE FOR UNKNOWN INDICATION
     Route: 048
  6. EXCEDRIN (MIGRAINE) [Concomitant]
     Indication: DISCOMFORT
     Route: 048
  7. NASONEX [Concomitant]
     Indication: DRUG USE FOR UNKNOWN INDICATION
     Route: 061
  8. TIOTROPIUM BROMIDE [Concomitant]
     Indication: DRUG USE FOR UNKNOWN INDICATION
  9. PULMICORT [Concomitant]
     Indication: DRUG USE FOR UNKNOWN INDICATION
  10. FORADIL [Concomitant]
     Indication: DRUG USE FOR UNKNOWN INDICATION

REACTIONS (2)
  - CONFUSIONAL STATE [None]
  - FATIGUE [None]
